FAERS Safety Report 6721998-2 (Version None)
Quarter: 2010Q2

REPORT INFORMATION
  Report Type: 
  Country: None (occurrence: None)
  Receive Date: 20100512
  Receipt Date: 20100504
  Transmission Date: 20101027
  Serious: Yes (Hospitalization)
  Sender: FDA-Public Use
  Company Number: B0652167A

PATIENT
  Sex: Female
  Weight: 41.2 kg

DRUGS (11)
  1. SULTANOL [Suspect]
     Route: 055
     Dates: start: 20080909
  2. MONOCLONAL ANTIBODIES [Suspect]
     Indication: THYMOMA MALIGNANT
     Route: 042
     Dates: start: 20100205, end: 20100331
  3. QVAR 40 [Suspect]
     Route: 055
     Dates: start: 20080906
  4. OXYCONTIN [Concomitant]
     Indication: CANCER PAIN
     Dosage: 100MG THREE TIMES PER DAY
     Route: 048
     Dates: start: 20031106
  5. GABAPENTIN [Concomitant]
     Dosage: 600MG THREE TIMES PER DAY
     Route: 048
     Dates: start: 20070702
  6. NAPROXEN [Concomitant]
     Indication: CANCER PAIN
     Dosage: 200MG THREE TIMES PER DAY
     Route: 048
     Dates: start: 20060309
  7. SELBEX [Concomitant]
     Indication: GASTRITIS PROPHYLAXIS
     Dosage: 50MG THREE TIMES PER DAY
     Route: 048
     Dates: start: 20051202
  8. MAGMITT [Concomitant]
     Indication: CONSTIPATION
     Dosage: 660MG THREE TIMES PER DAY
     Route: 048
     Dates: start: 20080319
  9. FAMOTIDINE [Concomitant]
     Indication: GASTRITIS PROPHYLAXIS
     Dosage: 20MG TWICE PER DAY
     Route: 048
     Dates: start: 20031104
  10. SOLANAX [Concomitant]
     Dosage: .2MG THREE TIMES PER DAY
     Route: 048
     Dates: start: 20031104
  11. RINDERON [Concomitant]
     Route: 062
     Dates: start: 20100302

REACTIONS (3)
  - HOT FLUSH [None]
  - OROPHARYNGEAL CANDIDIASIS [None]
  - OROPHARYNGEAL DISCOMFORT [None]
